FAERS Safety Report 21050230 (Version 3)
Quarter: 2022Q4

REPORT INFORMATION
  Report Type: Spontaneous
  Country: US (occurrence: US)
  Receive Date: 20220706
  Receipt Date: 20221222
  Transmission Date: 20230113
  Serious: Yes (Other)
  Sender: FDA-Public Use
  Company Number: US-JNJFOC-20220664688

PATIENT
  Age: 8 Decade
  Sex: Male

DRUGS (12)
  1. ELMIRON [Suspect]
     Active Substance: PENTOSAN POLYSULFATE SODIUM
     Indication: Cystitis interstitial
     Route: 048
     Dates: start: 20031007, end: 20140505
  2. INSULIN NOS [Concomitant]
     Active Substance: INSULIN NOS
     Indication: Diabetes mellitus
     Dates: start: 20030423
  3. ATENOLOL [Concomitant]
     Active Substance: ATENOLOL
     Indication: Hypertension
     Dates: start: 20030423, end: 20151206
  4. FELODIPINE [Concomitant]
     Active Substance: FELODIPINE
     Indication: Hypertension
     Dates: start: 20030423, end: 20080820
  5. FOSINOPRIL [Concomitant]
     Active Substance: FOSINOPRIL
     Indication: Hypertension
     Dates: start: 20030423, end: 20091012
  6. GLIPIZIDE [Concomitant]
     Active Substance: GLIPIZIDE
     Indication: Hypoglycaemia
     Dates: start: 20030423, end: 20150611
  7. LOVASTATIN [Concomitant]
     Active Substance: LOVASTATIN
     Indication: Blood cholesterol
     Dates: start: 20030423, end: 20090812
  8. PAXIL [Concomitant]
     Active Substance: PAROXETINE HYDROCHLORIDE
     Indication: Anxiety
     Dates: start: 1993, end: 20140915
  9. AMBIEN [Concomitant]
     Active Substance: ZOLPIDEM TARTRATE
     Indication: Insomnia
     Dates: start: 20030423, end: 20120612
  10. DETROL [Concomitant]
     Active Substance: TOLTERODINE TARTRATE
     Indication: Dysuria
     Dates: start: 20040929, end: 20130513
  11. AMITRIPTYLINE [Concomitant]
     Active Substance: AMITRIPTYLINE
     Indication: Dysuria
     Dates: start: 20040908, end: 20150611
  12. LEVOTHYROXINE [Concomitant]
     Active Substance: LEVOTHYROXINE
     Indication: Hypothyroidism
     Dates: start: 20030423, end: 20150611

REACTIONS (2)
  - Dry age-related macular degeneration [Not Recovered/Not Resolved]
  - Depression [Not Recovered/Not Resolved]

NARRATIVE: CASE EVENT DATE: 20070101
